FAERS Safety Report 13661218 (Version 1)
Quarter: 2017Q2

REPORT INFORMATION
  Report Type: Report from Study
  Country: US (occurrence: US)
  Receive Date: 20170616
  Receipt Date: 20170616
  Transmission Date: 20170830
  Serious: No
  Sender: FDA-Public Use
  Company Number: US-US WORLDMEDS, LLC-USW201701-000173

PATIENT
  Age: 77 Year
  Sex: Male
  Weight: 63.5 kg

DRUGS (3)
  1. NUPLAZID [Concomitant]
     Active Substance: PIMAVANSERIN TARTRATE
  2. APOKYN [Suspect]
     Active Substance: APOMORPHINE HYDROCHLORIDE
     Indication: PARKINSON^S DISEASE
     Route: 058
     Dates: start: 20161128
  3. RYTARY [Concomitant]
     Active Substance: CARBIDOPA\LEVODOPA

REACTIONS (5)
  - Lethargy [Unknown]
  - Rhinorrhoea [Unknown]
  - Asthenia [Recovered/Resolved]
  - Somnolence [Recovered/Resolved]
  - Fall [Unknown]

NARRATIVE: CASE EVENT DATE: 20170124
